FAERS Safety Report 21050138 (Version 1)
Quarter: 2022Q3

REPORT INFORMATION
  Report Type: Report from Study
  Country: ES (occurrence: ES)
  Receive Date: 20220706
  Receipt Date: 20220706
  Transmission Date: 20221026
  Serious: Yes (Hospitalization, Other)
  Sender: FDA-Public Use
  Company Number: ES-CELGENE-ESP-20210202268

PATIENT
  Age: 68 Year
  Sex: Female

DRUGS (12)
  1. AZACITIDINE [Suspect]
     Active Substance: AZACITIDINE
     Indication: Acute myeloid leukaemia
     Route: 058
     Dates: start: 20200111, end: 20210115
  2. VENETOCLAX [Suspect]
     Active Substance: VENETOCLAX
     Indication: Acute myeloid leukaemia
     Dosage: 400 MILLIGRAM
     Route: 048
     Dates: start: 20210111, end: 20210111
  3. VENETOCLAX [Suspect]
     Active Substance: VENETOCLAX
     Dosage: 400 MILLIGRAM
     Route: 048
     Dates: start: 20210111, end: 20210201
  4. SPIRONOLACTONE [Concomitant]
     Active Substance: SPIRONOLACTONE
     Indication: Hypertension
     Dosage: 1 IN 1 D
     Route: 048
     Dates: start: 20140716, end: 20201222
  5. SPIRONOLACTONE [Concomitant]
     Active Substance: SPIRONOLACTONE
     Dosage: 1 IN 1 D
     Route: 048
     Dates: start: 20210107, end: 20210201
  6. ACYCLOVIR [Concomitant]
     Active Substance: ACYCLOVIR
     Indication: Infection prophylaxis
     Dosage: 1600 MILLIGRAM
     Route: 048
     Dates: start: 20200607
  7. BISOPROLOL [Concomitant]
     Active Substance: BISOPROLOL
     Indication: Bundle branch block right
     Dosage: 1 IN 1 D
     Route: 048
     Dates: start: 20140716, end: 20201222
  8. BISOPROLOL [Concomitant]
     Active Substance: BISOPROLOL
     Dosage: 1 IN 1 D
     Route: 048
     Dates: start: 20210107, end: 20210201
  9. KYTRIL [Concomitant]
     Active Substance: GRANISETRON HYDROCHLORIDE
     Indication: Premedication
     Dosage: 1 AS REQUIRED
     Route: 048
     Dates: start: 20210111
  10. AMLODIPINE BESYLATE [Concomitant]
     Active Substance: AMLODIPINE BESYLATE
     Indication: Hypertension
     Dosage: 10 MILLIGRAM?DURATION TEXT : 6 YEARS
     Route: 048
     Dates: start: 20140116, end: 20201222
  11. AMLODIPINE BESYLATE [Concomitant]
     Active Substance: AMLODIPINE BESYLATE
     Route: 048
     Dates: start: 20210107, end: 20210201
  12. OMEPRAZOLE [Concomitant]
     Active Substance: OMEPRAZOLE
     Indication: Gastric disorder
     Dosage: 20 MILLIGRAM
     Route: 048
     Dates: start: 20200607

REACTIONS (1)
  - COVID-19 pneumonia [Recovered/Resolved]

NARRATIVE: CASE EVENT DATE: 20210201
